FAERS Safety Report 6236950-3 (Version None)
Quarter: 2009Q2

REPORT INFORMATION
  Report Type: 
  Country: None (occurrence: None)
  Receive Date: 20090619
  Receipt Date: 20090223
  Transmission Date: 20091009
  Serious: No
  Sender: FDA-Public Use
  Company Number: US-ASTRAZENECA-2009UW05112

PATIENT
  Age: 16817 Day
  Sex: Female
  Weight: 90.7 kg

DRUGS (1)
  1. SYMBICORT [Suspect]
     Dosage: 160/4.5 UG, 2 PUFFS, BID
     Route: 055
     Dates: start: 20080801, end: 20090209

REACTIONS (2)
  - BLISTER [None]
  - RASH PRURITIC [None]
